FAERS Safety Report 4425459-5 (Version None)
Quarter: 2004Q3

REPORT INFORMATION
  Report Type: 
  Country: None (occurrence: None)
  Receive Date: 20040810
  Receipt Date: 20040714
  Transmission Date: 20050211
  Serious: Yes (Other)
  Sender: FDA-Public Use
  Company Number: 2004BL005251

PATIENT
  Age: 22 Year
  Sex: Female

DRUGS (1)
  1. VITRASERT [Suspect]
     Indication: CYTOMEGALOVIRUS CHORIORETINITIS
     Dosage: 36MG; INTRAOCULAR
     Route: 031
     Dates: start: 19990101, end: 20020101

REACTIONS (8)
  - CATARACT [None]
  - EYE PAIN [None]
  - IMPLANT SITE REACTION [None]
  - NECROTISING SCLERITIS [None]
  - SCLERAL DISORDER [None]
  - SCLERAL THINNING [None]
  - VISUAL ACUITY REDUCED [None]
  - WOUND DEHISCENCE [None]
